FAERS Safety Report 14584236 (Version 1)
Quarter: 2018Q1

REPORT INFORMATION
  Report Type: Spontaneous
  Country: US (occurrence: US)
  Receive Date: 20180228
  Receipt Date: 20180228
  Transmission Date: 20180509
  Serious: No
  Sender: FDA-Public Use
  Company Number: US-BIOGEN-2017BI00376422

PATIENT
  Age: 43 Year
  Sex: Female

DRUGS (2)
  1. SPINRAZA [Suspect]
     Active Substance: NUSINERSEN
     Indication: SPINAL MUSCULAR ATROPHY
     Route: 065
     Dates: start: 20170317
  2. SPINRAZA [Suspect]
     Active Substance: NUSINERSEN
     Route: 065
     Dates: start: 20170301

REACTIONS (9)
  - Balance disorder [Recovered/Resolved]
  - Post lumbar puncture syndrome [Unknown]
  - Headache [Unknown]
  - Joint swelling [Unknown]
  - Gait disturbance [Recovered/Resolved]
  - Mobility decreased [Unknown]
  - Injection site pain [Unknown]
  - Asthenia [Recovered/Resolved]
  - Drug effect incomplete [Unknown]

NARRATIVE: CASE EVENT DATE: 20170301
